FAERS Safety Report 11809446 (Version 1)
Quarter: 2015Q4

REPORT INFORMATION
  Report Type: Spontaneous
  Country: FR (occurrence: FR)
  Receive Date: 20151208
  Receipt Date: 20151208
  Transmission Date: 20160305
  Serious: Yes (Hospitalization)
  Sender: FDA-Public Use
  Company Number: FR-ROCHE-1671732

PATIENT
  Age: 57 Year
  Sex: Female

DRUGS (11)
  1. PECFENT [Concomitant]
     Active Substance: FENTANYL CITRATE
  2. OMEPRAZOLE. [Concomitant]
     Active Substance: OMEPRAZOLE
     Route: 048
  3. DUROGESIC [Concomitant]
     Active Substance: FENTANYL
  4. PACLITAXEL. [Concomitant]
     Active Substance: PACLITAXEL
  5. SERETIDE [Concomitant]
     Active Substance: FLUTICASONE FUROATE\SALMETEROL XINAFOATE
  6. CORTANCYL [Concomitant]
     Active Substance: PREDNISONE
     Route: 048
  7. VENTOLINE [Concomitant]
     Active Substance: ALBUTEROL
  8. XELODA [Suspect]
     Active Substance: CAPECITABINE
     Indication: BREAST CANCER METASTATIC
     Route: 048
     Dates: start: 20150901, end: 20150928
  9. BEVACIZUMAB [Concomitant]
     Active Substance: BEVACIZUMAB
     Route: 065
  10. AERIUS [Concomitant]
     Active Substance: DESLORATADINE
     Route: 048
  11. EXACYL [Concomitant]
     Active Substance: TRANEXAMIC ACID

REACTIONS (5)
  - Dyspnoea [Recovered/Resolved]
  - Diarrhoea [Recovered/Resolved]
  - Anaemia [Not Recovered/Not Resolved]
  - Hepatic lesion [Recovering/Resolving]
  - Thrombocytopenia [Not Recovered/Not Resolved]

NARRATIVE: CASE EVENT DATE: 201509
